FAERS Safety Report 7448572-7 (Version None)
Quarter: 2011Q2

REPORT INFORMATION
  Report Type: 
  Country: None (occurrence: None)
  Receive Date: 20110429
  Receipt Date: 20100608
  Transmission Date: 20111010
  Serious: No
  Sender: FDA-Public Use
  Company Number: US-ASTRAZENECA-2010SE26427

PATIENT
  Sex: Female

DRUGS (2)
  1. NEXIUM [Suspect]
     Indication: GASTROOESOPHAGEAL REFLUX DISEASE
     Route: 048
     Dates: start: 20100501
  2. TUMS [Concomitant]
     Indication: ABDOMINAL PAIN UPPER

REACTIONS (2)
  - ABDOMINAL PAIN UPPER [None]
  - GALLBLADDER DISORDER [None]
